FAERS Safety Report 13039367 (Version 1)
Quarter: 2016Q4

REPORT INFORMATION
  Report Type: Spontaneous
  Country: GB (occurrence: GB)
  Receive Date: 20161219
  Receipt Date: 20161219
  Transmission Date: 20170207
  Serious: Yes (Hospitalization)
  Sender: FDA-Public Use
  Company Number: GB-CELLTRION INC.-2016GB013232

PATIENT
  Age: 60 Year
  Sex: Female

DRUGS (1)
  1. INFLECTRA [Suspect]
     Active Substance: INFLIXIMAB-DYYB

REACTIONS (3)
  - Balance disorder [Unknown]
  - Encephalopathy [Unknown]
  - Cognitive disorder [Unknown]
